FAERS Safety Report 6690048-9 (Version None)
Quarter: 2010Q2

REPORT INFORMATION
  Report Type: 
  Country: None (occurrence: None)
  Receive Date: 20100421
  Receipt Date: 20100413
  Transmission Date: 20101027
  Serious: Yes (Other)
  Sender: FDA-Public Use
  Company Number: PHHY2010DK22516

PATIENT
  Sex: Female

DRUGS (1)
  1. RITALIN [Suspect]
     Indication: ATTENTION DEFICIT/HYPERACTIVITY DISORDER
     Dosage: 10 MILLIGRAM(S)
     Route: 048
     Dates: end: 20091005

REACTIONS (8)
  - AGITATION [None]
  - ANGER [None]
  - ANXIETY [None]
  - HALLUCINATION, AUDITORY [None]
  - MENTAL IMPAIRMENT [None]
  - RESTLESSNESS [None]
  - SUICIDAL IDEATION [None]
  - TREMOR [None]
